FAERS Safety Report 5641758-3 (Version None)
Quarter: 2008Q1

REPORT INFORMATION
  Report Type: 
  Country: None (occurrence: None)
  Receive Date: 20080131
  Receipt Date: 20071025
  Transmission Date: 20080703
  Serious: No
  Sender: FDA-Public Use
  Company Number: PHEH2007US14243

PATIENT
  Age: 62 Year
  Sex: Female
  Weight: 63.5 kg

DRUGS (2)
  1. TEKTURNA [Suspect]
     Indication: HYPERTENSION
     Dosage: 150 MG, QD, ORAL
     Route: 048
     Dates: start: 20071018, end: 20071022
  2. THYROXINE (LEVOTHYROXINE SODIUM) UNK [Concomitant]

REACTIONS (3)
  - CHEST DISCOMFORT [None]
  - HEADACHE [None]
  - RASH [None]
